FAERS Safety Report 21623261 (Version 1)
Quarter: 2022Q4

REPORT INFORMATION
  Report Type: Spontaneous
  Country: US (occurrence: None)
  Receive Date: 20221121
  Receipt Date: 20221121
  Transmission Date: 20230112
  Serious: Yes (Life-Threatening, Hospitalization)
  Sender: FDA-Public Use
  Company Number: None

PATIENT
  Age: 35 Year
  Sex: Male
  Weight: 144 kg

DRUGS (1)
  1. CLOZAPINE [Suspect]
     Active Substance: CLOZAPINE
     Indication: Schizophrenia
     Dates: start: 20170302

REACTIONS (4)
  - Aggression [None]
  - Therapy interrupted [None]
  - Drug monitoring procedure not performed [None]
  - Intentional self-injury [None]

NARRATIVE: CASE EVENT DATE: 20220924
